FAERS Safety Report 7055148-2 (Version None)
Quarter: 2010Q4

REPORT INFORMATION
  Report Type: 
  Country: None (occurrence: None)
  Receive Date: 20101021
  Receipt Date: 20101011
  Transmission Date: 20110411
  Serious: Yes (Other)
  Sender: FDA-Public Use
  Company Number: US-WYE-H18122910

PATIENT
  Sex: Female
  Weight: 77.18 kg

DRUGS (5)
  1. PROTONIX [Suspect]
     Indication: ABDOMINAL DISCOMFORT
     Route: 048
     Dates: start: 20100801
  2. PROTONIX [Suspect]
     Indication: MALAISE
  3. LIPITOR [Concomitant]
     Indication: BLOOD CHOLESTEROL INCREASED
     Dosage: UNKNOWN
     Route: 048
     Dates: start: 20000101
  4. CHANTIX [Suspect]
     Indication: EX-TOBACCO USER
     Route: 048
     Dates: start: 20100729, end: 20100801
  5. CHANTIX [Suspect]
     Dosage: UNKNOWN
     Route: 048
     Dates: start: 20100801, end: 20100819

REACTIONS (10)
  - AMNESIA [None]
  - ANXIETY [None]
  - CHILLS [None]
  - DEPRESSION [None]
  - DRUG INEFFECTIVE [None]
  - FEELING ABNORMAL [None]
  - HALLUCINATION [None]
  - MENTAL DISORDER [None]
  - SPEECH DISORDER [None]
  - SUICIDAL IDEATION [None]
